FAERS Safety Report 23444696 (Version 3)
Quarter: 2024Q1

REPORT INFORMATION
  Report Type: Spontaneous
  Country: US (occurrence: US)
  Receive Date: 20240125
  Receipt Date: 20240319
  Transmission Date: 20240410
  Serious: Yes (Other)
  Sender: FDA-Public Use
  Company Number: US-BRISTOL-MYERS SQUIBB COMPANY-2024-011746

PATIENT
  Age: 81 Year
  Sex: Female

DRUGS (2)
  1. REVLIMID [Suspect]
     Active Substance: LENALIDOMIDE
     Indication: Irritable bowel syndrome
     Dosage: TAKE 1 CAPSULE BY MOUTH EVERY DAY FOR 21 DAYS THEN 7 DAYS OFF THEN REPEAT
     Route: 048
     Dates: start: 20220817
  2. REVLIMID [Suspect]
     Active Substance: LENALIDOMIDE
     Indication: Oedema

REACTIONS (6)
  - Irritable bowel syndrome [Recovered/Resolved]
  - Off label use [Unknown]
  - Osteoporosis [Recovering/Resolving]
  - Fatigue [Unknown]
  - Malaise [Unknown]
  - Interstitial lung disease [Unknown]
